FAERS Safety Report 13280497 (Version 1)
Quarter: 2017Q1

REPORT INFORMATION
  Report Type: Spontaneous
  Country: US (occurrence: US)
  Receive Date: 20170228
  Receipt Date: 20170228
  Transmission Date: 20170428
  Serious: Yes (Other)
  Sender: FDA-Public Use
  Company Number: None

PATIENT
  Age: 21 Year
  Sex: Male
  Weight: 81 kg

DRUGS (1)
  1. IPILIMUMAB [Suspect]
     Active Substance: IPILIMUMAB
     Indication: MALIGNANT MELANOMA STAGE III
     Dosage: 816 MG INTRAVENOUS DRIP ONCE EVERY 3 WEEKS?
     Route: 041
     Dates: start: 20160801, end: 20161031

REACTIONS (5)
  - Renal impairment [None]
  - Lymphadenopathy [None]
  - Sarcoidosis [None]
  - Cerebrovascular accident [None]
  - Headache [None]

NARRATIVE: CASE EVENT DATE: 20170228
